FAERS Safety Report 8320252-5 (Version None)
Quarter: 2012Q2

REPORT INFORMATION
  Report Type: 
  Country: None (occurrence: None)
  Receive Date: 20120430
  Receipt Date: 20120426
  Transmission Date: 20120825
  Serious: Yes (Hospitalization)
  Sender: FDA-Public Use
  Company Number: AU-SHIRE-PNT1-2010-00008

PATIENT
  Sex: Male
  Weight: 90 kg

DRUGS (4)
  1. TEMAZEPAM [Concomitant]
     Indication: INSOMNIA
  2. MESALAMINE [Suspect]
     Indication: DIVERTICULITIS
     Dosage: UNK UNK, 1X/DAY:QD
     Dates: start: 20100208, end: 20100217
  3. FLUOXETINE HCL [Concomitant]
     Indication: DEPRESSION
  4. PANADON [Concomitant]
     Indication: PAIN

REACTIONS (1)
  - VIRAL INFECTION [None]
